FAERS Safety Report 19967713 (Version 1)
Quarter: 2021Q4

REPORT INFORMATION
  Report Type: Spontaneous
  Country: US (occurrence: US)
  Receive Date: 20211018
  Receipt Date: 20211018
  Transmission Date: 20220303
  Serious: Yes (Hospitalization)
  Sender: FDA-Public Use
  Company Number: None

PATIENT
  Age: 33 Year
  Sex: Female

DRUGS (1)
  1. AJOVY [Suspect]
     Active Substance: FREMANEZUMAB-VFRM
     Indication: Migraine without aura
     Dosage: ?          OTHER FREQUENCY:QM;
     Route: 058
     Dates: start: 20200512

REACTIONS (2)
  - Staphylococcal infection [None]
  - Near death experience [None]

NARRATIVE: CASE EVENT DATE: 20211015
